FAERS Safety Report 4314955-7 (Version None)
Quarter: 2004Q1

REPORT INFORMATION
  Report Type: 
  Country: None (occurrence: None)
  Receive Date: 20040309
  Receipt Date: 20040224
  Transmission Date: 20041129
  Serious: Yes (Other)
  Sender: FDA-Public Use
  Company Number: IE-SHR-04-020911

PATIENT
  Age: 49 Year
  Sex: Male

DRUGS (8)
  1. CAMPATH/ MABCAMPATH (ALEMTUXUMAB) AMPULE [Suspect]
     Indication: T-CELL LYMPHOMA
  2. PREDNISOLONE [Suspect]
     Indication: T-CELL LYMPHOMA
     Dosage: SEE IMAGE
  3. PREDNISOLONE [Suspect]
     Indication: T-CELL LYMPHOMA
     Dosage: SEE IMAGE
  4. METHOTREXATE [Concomitant]
  5. DOXORUBICIN HCL [Concomitant]
  6. CYCLOPHOSPHAMIDE [Concomitant]
  7. VINCRISTINE [Concomitant]
  8. BLEOMYCIN [Concomitant]

REACTIONS (6)
  - HYPERTRIGLYCERIDAEMIA [None]
  - INSULIN RESISTANT DIABETES [None]
  - LIPODYSTROPHY ACQUIRED [None]
  - NUCLEAR MAGNETIC RESONANCE IMAGING ABNORMAL [None]
  - PAROTID GLAND ENLARGEMENT [None]
  - SJOGREN'S SYNDROME [None]
